FAERS Safety Report 8021221-5 (Version None)
Quarter: 2011Q4

REPORT INFORMATION
  Report Type: 
  Country: None (occurrence: None)
  Receive Date: 20111223
  Receipt Date: 20111216
  Transmission Date: 20120403
  Serious: Yes (Hospitalization)
  Sender: FDA-Public Use
  Company Number: 2011030369

PATIENT
  Age: 70 Year
  Sex: Female
  Weight: 77.1115 kg

DRUGS (21)
  1. HIZENTRA [Suspect]
     Indication: COMBINED IMMUNODEFICIENCY
     Dosage: 3-4 SITES OVER 1.5 - 2 HOURS
     Dates: start: 20111207
  2. ATENOLOL [Concomitant]
  3. THEOPHYLLINE [Concomitant]
  4. LASIX [Concomitant]
  5. PREVACID [Concomitant]
  6. HIZENTRA [Suspect]
     Indication: COMBINED IMMUNODEFICIENCY
     Dosage: (12 G 1X/WEEK, 60 ML VIA 3-4 SITES OVER 1.5 TO 2 HOURS SUBCUTANEOUS
     Route: 058
     Dates: start: 20111025
  7. HIZENTRA [Suspect]
     Indication: COMBINED IMMUNODEFICIENCY
     Dates: start: 20111116, end: 20111116
  8. POTASSIUM CHLORIDE [Concomitant]
  9. CELEXA [Concomitant]
  10. ATIVAN [Concomitant]
  11. PRO-AIR (PROCATEROL HYDROCHLORIDE) [Concomitant]
  12. XOLAIR [Concomitant]
  13. ENBREL [Concomitant]
  14. LIPITOR [Concomitant]
  15. ADVAIR DISKUS 100/50 [Concomitant]
  16. ZESTRIL [Concomitant]
  17. ARAVA [Concomitant]
  18. GLIPIZIDE [Concomitant]
  19. PLAVIX [Concomitant]
  20. VITAMIN D [Concomitant]
  21. FOLIC ACID [Concomitant]

REACTIONS (1)
  - BRONCHITIS [None]
